FAERS Safety Report 4696968-9 (Version None)
Quarter: 2005Q2

REPORT INFORMATION
  Report Type: 
  Country: None (occurrence: None)
  Receive Date: 20050620
  Receipt Date: 20050518
  Transmission Date: 20051028
  Serious: No
  Sender: FDA-Public Use
  Company Number: US-YAMANOUCHI-YPA20050258

PATIENT
  Age: 58 Year
  Sex: Female
  Weight: 68.0396 kg

DRUGS (8)
  1. VESICARE [Suspect]
     Indication: HYPERTONIC BLADDER
     Dosage: 5 MG QD PO
     Route: 048
     Dates: start: 20050509
  2. DITROPAN [Concomitant]
  3. CALCIUM GLUCONATE [Concomitant]
  4. GLUCOSAMINE/CHONDROITIN [Concomitant]
  5. B-50 [Concomitant]
  6. CYCLOBENZAPRINE HCL [Concomitant]
  7. ASPIRIN [Concomitant]
  8. ESTRACE [Concomitant]

REACTIONS (1)
  - CONSTIPATION [None]
